FAERS Safety Report 8356135-4 (Version None)
Quarter: 2012Q2

REPORT INFORMATION
  Report Type: 
  Country: None (occurrence: None)
  Receive Date: 20120510
  Receipt Date: 20120427
  Transmission Date: 20120825
  Serious: Yes (Hospitalization, Disabling, Other)
  Sender: FDA-Public Use
  Company Number: 2010AL002997

PATIENT
  Age: 76 Year
  Sex: Male
  Weight: 78.9259 kg

DRUGS (47)
  1. CARDURA [Concomitant]
  2. DARVOCET-N 50 [Concomitant]
  3. DIOVAN [Concomitant]
  4. CLARITIN [Concomitant]
  5. TEKTURNA [Concomitant]
  6. TYLENOL COLD + SINUS [Concomitant]
  7. ZESTRIL [Concomitant]
  8. MAGNESIUM [Concomitant]
  9. LANOXIN [Concomitant]
  10. NEXIUM [Concomitant]
  11. AZITHROMYCIN [Concomitant]
  12. PEPCID [Concomitant]
  13. ZESTORETIC [Concomitant]
  14. ADVAIR DISKUS 100/50 [Concomitant]
  15. METOCLOPRAMIDE [Suspect]
     Indication: IMPAIRED GASTRIC EMPTYING
     Dosage: 10 MG; QD;PO
     Route: 048
     Dates: start: 20030811, end: 20081117
  16. CARAFATE [Concomitant]
  17. NITROGLYCERIN [Concomitant]
  18. ATENOLOL [Concomitant]
  19. DIGOXIN [Concomitant]
  20. LEVROXINE [Concomitant]
  21. ZANTAC [Concomitant]
  22. BELLADONNA TINCTURE [Concomitant]
  23. PROTONIX [Concomitant]
  24. PRINZIDE [Concomitant]
  25. ATENOLOL [Concomitant]
  26. PANTOPRAZOLE [Concomitant]
  27. AMLODIPINE BESYLATE [Concomitant]
  28. COUMADIN [Concomitant]
  29. INDOCIN [Concomitant]
  30. PHENOBARBITAL TAB [Concomitant]
  31. INDOMETHACIN [Concomitant]
  32. PHENERGAN [Concomitant]
  33. AVANDIA [Concomitant]
  34. NORVASC [Concomitant]
  35. CALAN [Concomitant]
  36. AMPICILLIN [Concomitant]
  37. BACTRIM [Concomitant]
  38. STEROIDS [Concomitant]
  39. ZITHROMAX [Concomitant]
  40. LISINOPRIL [Concomitant]
  41. PRILOSEC [Concomitant]
  42. ACIPHEX [Concomitant]
  43. ASPIRIN [Concomitant]
  44. TYLENOL (CAPLET) [Concomitant]
  45. DOXASOSIN [Concomitant]
  46. PROMETHAZINE [Concomitant]
  47. FUROSEMIDE [Concomitant]

REACTIONS (39)
  - NAUSEA [None]
  - ABDOMINAL PAIN [None]
  - WEIGHT DECREASED [None]
  - LEFT ATRIAL DILATATION [None]
  - SUPRAVENTRICULAR TACHYCARDIA [None]
  - SURGICAL FAILURE [None]
  - JOINT RANGE OF MOTION DECREASED [None]
  - FACIAL ASYMMETRY [None]
  - ESSENTIAL HYPERTENSION [None]
  - DRUG INEFFECTIVE [None]
  - FATIGUE [None]
  - GASTRIC ULCER [None]
  - DIZZINESS [None]
  - ERECTILE DYSFUNCTION [None]
  - BACK PAIN [None]
  - MALAISE [None]
  - DYSURIA [None]
  - HICCUPS [None]
  - PRESYNCOPE [None]
  - HYPOTHYROIDISM [None]
  - PROSTATIC SPECIFIC ANTIGEN INCREASED [None]
  - HEART VALVE INCOMPETENCE [None]
  - VENTRICULAR EXTRASYSTOLES [None]
  - BLOOD GLUCOSE INCREASED [None]
  - TARDIVE DYSKINESIA [None]
  - CARDIAC FAILURE CONGESTIVE [None]
  - LOWER URINARY TRACT SYMPTOMS [None]
  - EAR PAIN [None]
  - VITILIGO [None]
  - SPEECH DISORDER [None]
  - HIATUS HERNIA [None]
  - URINARY HESITATION [None]
  - HYPOTENSION [None]
  - PAIN [None]
  - CONSTIPATION [None]
  - PRODUCT SUBSTITUTION ISSUE [None]
  - DECREASED APPETITE [None]
  - ARTHRALGIA [None]
  - LEFT VENTRICULAR HYPERTROPHY [None]
